FAERS Safety Report 6225316-8 (Version None)
Quarter: 2009Q2

REPORT INFORMATION
  Report Type: 
  Country: None (occurrence: None)
  Receive Date: 20090612
  Receipt Date: 20090415
  Transmission Date: 20091009
  Serious: No
  Sender: FDA-Public Use
  Company Number: US-ABBOTT-09P-163-0568329-00

PATIENT
  Sex: Female
  Weight: 59.928 kg

DRUGS (12)
  1. HUMIRA [Suspect]
     Indication: ARTHRITIS
     Route: 058
     Dates: start: 20080101, end: 20090201
  2. AZULFADINE [Concomitant]
     Indication: ARTHRITIS
  3. IBUPROFEN [Concomitant]
     Indication: ARTHRITIS
  4. LEVBID [Concomitant]
     Indication: PROPHYLAXIS
  5. LEVBID [Concomitant]
     Indication: GASTRIC DISORDER
  6. PROTONIX [Concomitant]
     Indication: GASTROOESOPHAGEAL REFLUX DISEASE
  7. PRILOSEC [Concomitant]
     Indication: GASTROOESOPHAGEAL REFLUX DISEASE
  8. VERAMIST [Concomitant]
     Indication: HYPERSENSITIVITY
  9. VITAMIN D [Concomitant]
     Indication: VITAMIN D DEFICIENCY
  10. ARAVA [Concomitant]
     Indication: ARTHRITIS
  11. METHOTREXATE [Concomitant]
     Indication: ARTHRITIS
  12. FORTEO [Concomitant]
     Indication: ARTHRITIS

REACTIONS (1)
  - SKIN BURNING SENSATION [None]
